FAERS Safety Report 4398185-9 (Version None)
Quarter: 2004Q3

REPORT INFORMATION
  Report Type: 
  Country: None (occurrence: None)
  Receive Date: 20040715
  Receipt Date: 20040701
  Transmission Date: 20050211
  Serious: Yes (Other)
  Sender: FDA-Public Use
  Company Number: PHBS2004ZA08847

PATIENT
  Age: 50 Year
  Sex: Female

DRUGS (1)
  1. VOLTAREN [Suspect]
     Indication: BACK PAIN
     Dosage: 1 DF, ONCE/SINGLE
     Route: 030

REACTIONS (3)
  - FASCIITIS [None]
  - INJECTION SITE NECROSIS [None]
  - MOVEMENT DISORDER [None]
